FAERS Safety Report 12315940 (Version 4)
Quarter: 2017Q1

REPORT INFORMATION
  Report Type: Report from Study
  Country: JP (occurrence: JP)
  Receive Date: 20160428
  Receipt Date: 20170117
  Transmission Date: 20170428
  Serious: Yes (Death)
  Sender: FDA-Public Use
  Company Number: JP-GILEAD-2016-0209352

PATIENT
  Age: 79 Year
  Sex: Female
  Weight: 43.5 kg

DRUGS (6)
  1. SOFOSBUVIR [Suspect]
     Active Substance: SOFOSBUVIR
     Indication: CHRONIC HEPATITIS C
     Dosage: 400 MG, QD
     Route: 048
     Dates: start: 20160112
  2. EURODIN                            /00401202/ [Concomitant]
     Active Substance: DIHYDROERGOCRISTINE MESYLATE
     Indication: DEPRESSION
     Dosage: 1 MG, TID
     Route: 048
     Dates: start: 1998
  3. COPEGUS [Suspect]
     Active Substance: RIBAVIRIN
     Indication: CHRONIC HEPATITIS C
     Dosage: 600 MG, QD
     Route: 048
     Dates: start: 20160112
  4. SILECE [Concomitant]
     Active Substance: FLUNITRAZEPAM
     Dosage: 1 MG, QD
     Route: 048
     Dates: start: 20151106
  5. SILECE [Concomitant]
     Active Substance: FLUNITRAZEPAM
     Indication: DEPRESSION
     Dosage: 2 MG, QD
     Route: 048
     Dates: start: 1998, end: 201501
  6. EURODIN                            /00401202/ [Concomitant]
     Active Substance: DIHYDROERGOCRISTINE MESYLATE
     Dosage: UNK
     Route: 048
     Dates: start: 20151106

REACTIONS (1)
  - Pyrexia [Fatal]

NARRATIVE: CASE EVENT DATE: 20160403
